FAERS Safety Report 5106567-2 (Version None)
Quarter: 2006Q3

REPORT INFORMATION
  Report Type: 
  Country: None (occurrence: None)
  Receive Date: 20060918
  Receipt Date: 20060911
  Transmission Date: 20061208
  Serious: Yes (Life-Threatening, Hospitalization)
  Sender: FDA-Public Use
  Company Number: NL-GLAXOSMITHKLINE-B0438358A

PATIENT
  Age: 38 Year
  Sex: Male
  Weight: 75 kg

DRUGS (2)
  1. PAROXETINE HYDROCHLORIDE [Suspect]
     Indication: DRUG USE FOR UNKNOWN INDICATION
     Dates: start: 19960101
  2. ZOLOFT [Suspect]
     Dates: start: 20060601, end: 20060801

REACTIONS (8)
  - BACK PAIN [None]
  - DEATH OF COMPANION [None]
  - DEATH OF PET [None]
  - DEPRESSION [None]
  - DRUG EFFECT DECREASED [None]
  - HOMICIDAL IDEATION [None]
  - STRESS [None]
  - SUICIDAL IDEATION [None]
